FAERS Safety Report 6166386-5 (Version None)
Quarter: 2009Q2

REPORT INFORMATION
  Report Type: 
  Country: None (occurrence: None)
  Receive Date: 20090424
  Receipt Date: 20090102
  Transmission Date: 20091009
  Serious: No
  Sender: FDA-Public Use
  Company Number: A0762057A

PATIENT
  Age: 29 Year
  Sex: Male

DRUGS (4)
  1. DEXTROAMPHETAMINE [Suspect]
     Indication: ATTENTION DEFICIT/HYPERACTIVITY DISORDER
     Dosage: 20MG PER DAY
     Route: 048
     Dates: start: 20081215
  2. CLONAZEPAM [Concomitant]
  3. LEVOTHYROXINE [Concomitant]
  4. M.V.I. [Concomitant]

REACTIONS (1)
  - DYSGEUSIA [None]
